FAERS Safety Report 14998582 (Version 1)
Quarter: 2018Q2

REPORT INFORMATION
  Report Type: Spontaneous
  Country: US (occurrence: US)
  Receive Date: 20180612
  Receipt Date: 20180612
  Transmission Date: 20180711
  Serious: No
  Sender: FDA-Public Use
  Company Number: US-LUPIN PHARMACEUTICALS INC.-2017-07571

PATIENT
  Age: 79 Year
  Sex: Female
  Weight: 60 kg

DRUGS (5)
  1. PRALUENT [Concomitant]
     Active Substance: ALIROCUMAB
     Indication: BLOOD CHOLESTEROL ABNORMAL
     Dosage: 1 INJ OF 75MG TWICE A MONTH IN STOMACH
     Route: 058
  2. SYNTHROID [Concomitant]
     Active Substance: LEVOTHYROXINE SODIUM
     Indication: PROPHYLAXIS
     Dosage: 1 PILL DIE (88MCG) FOR 6 DAYS/WEEK AND 1/2 PILL (44MCG) ON THE 7TH DAY OF THE WEEK
     Route: 048
  3. IRBESARTAN TABLETS USP 75 MG [Suspect]
     Active Substance: IRBESARTAN
     Indication: BLOOD PRESSURE ABNORMAL
     Dosage: 75MG (IN THE EVENING)
     Route: 048
  4. LASIX [Concomitant]
     Active Substance: FUROSEMIDE
     Indication: BLOOD PRESSURE MEASUREMENT
     Dosage: 20 MG
     Route: 048
  5. CLONIDINE. [Concomitant]
     Active Substance: CLONIDINE
     Indication: BLOOD PRESSURE MEASUREMENT
     Dosage: 0.2 MG
     Route: 065
     Dates: start: 2009

REACTIONS (7)
  - Weight increased [Unknown]
  - Peripheral swelling [Not Recovered/Not Resolved]
  - Pain in extremity [Unknown]
  - Sensory disturbance [Not Recovered/Not Resolved]
  - Musculoskeletal stiffness [Unknown]
  - Fluid retention [Not Recovered/Not Resolved]
  - Dry mouth [Not Recovered/Not Resolved]

NARRATIVE: CASE EVENT DATE: 20170619
